FAERS Safety Report 8618244-1 (Version None)
Quarter: 2012Q3

REPORT INFORMATION
  Report Type: 
  Country: None (occurrence: None)
  Receive Date: 20120824
  Receipt Date: 20120813
  Transmission Date: 20120928
  Serious: No
  Sender: FDA-Public Use
  Company Number: US-009507513-1208USA006093

PATIENT

DRUGS (3)
  1. LEVOTHYROXINE SODIUM [Concomitant]
  2. REFRESH EYE DROPS [Concomitant]
  3. ZIOPTAN [Suspect]
     Indication: GLAUCOMA
     Dosage: ONE DROP IN EACH EYE PER EVENING
     Route: 047
     Dates: start: 20120531

REACTIONS (6)
  - GROWTH OF EYELASHES [None]
  - JOINT STIFFNESS [None]
  - EYE COLOUR CHANGE [None]
  - COUGH [None]
  - NASOPHARYNGITIS [None]
  - EYELASH DISCOLOURATION [None]
